FAERS Safety Report 9767958 (Version 1)
Quarter: 2013Q4

REPORT INFORMATION
  Report Type: Spontaneous
  Country: GB (occurrence: GB)
  Receive Date: 20131217
  Receipt Date: 20131217
  Transmission Date: 20140711
  Serious: Yes (Life-Threatening)
  Sender: FDA-Public Use
  Company Number: GB-TEVA-449994ISR

PATIENT
  Age: 49 Year
  Sex: Female

DRUGS (6)
  1. PREDNISOLONE [Suspect]
     Indication: RENAL TRANSPLANT
     Dosage: 5 MILLIGRAM DAILY; IN THE MORNING
     Route: 048
  2. ASPIRIN [Interacting]
     Dosage: 75 MILLIGRAM DAILY; IN THE MORNING
     Route: 048
  3. ALFACALCIDOL [Concomitant]
     Dosage: 500/750 NANOGRAMS ON ALTERNATE DAYS, IN THE MORNING.
     Route: 048
  4. PROGRAF [Concomitant]
     Dosage: 10 MILLIGRAM DAILY;
     Route: 048
  5. SODIUM BICARBONATE [Concomitant]
     Dosage: 3.5 GRAM MORNING AND LUNCH, 3 GRAMS AT NIGHT.
     Route: 048
  6. AZATHIOPRINE [Concomitant]
     Dosage: 75 MILLIGRAM DAILY; IN THE MORNING.
     Route: 048

REACTIONS (2)
  - Gastrointestinal haemorrhage [Recovered/Resolved]
  - Drug interaction [Unknown]
